FAERS Safety Report 4660778-9 (Version None)
Quarter: 2005Q2

REPORT INFORMATION
  Report Type: 
  Country: None (occurrence: None)
  Receive Date: 20050427
  Receipt Date: 20040601
  Transmission Date: 20051028
  Serious: Yes (Other)
  Sender: FDA-Public Use
  Company Number: US-JNJFOC-20040600708

PATIENT
  Age: 53 Year
  Sex: Female

DRUGS (1)
  1. ULTRAM [Suspect]
     Indication: PAIN
     Dosage: ORAL
     Route: 048
     Dates: start: 19990101, end: 19990101

REACTIONS (1)
  - GRAND MAL CONVULSION [None]
